FAERS Safety Report 5075568-5 (Version None)
Quarter: 2006Q3

REPORT INFORMATION
  Report Type: 
  Country: None (occurrence: None)
  Receive Date: 20060809
  Receipt Date: 20060727
  Transmission Date: 20061208
  Serious: Yes (Death)
  Sender: FDA-Public Use
  Company Number: US-BRISTOL-MYERS SQUIBB COMPANY-13458963

PATIENT
  Sex: Male

DRUGS (1)
  1. TAXOL [Suspect]

REACTIONS (1)
  - DEATH [None]
